FAERS Safety Report 9402773 (Version 1)
Quarter: 2013Q3

REPORT INFORMATION
  Report Type: Report from Study
  Country: US (occurrence: US)
  Receive Date: 20130716
  Receipt Date: 20130716
  Transmission Date: 20140515
  Serious: Yes (Other)
  Sender: FDA-Public Use
  Company Number: US-ABBOTT-13P-163-1117088-00

PATIENT
  Sex: Female

DRUGS (5)
  1. HUMIRA [Suspect]
     Indication: CROHN^S DISEASE
     Dates: start: 2009
  2. HUMIRA [Suspect]
  3. HUMIRA [Suspect]
     Dates: end: 2011
  4. HUMIRA [Suspect]
     Dates: start: 2011
  5. BUSCOPAN [Concomitant]
     Indication: ABDOMINAL PAIN UPPER

REACTIONS (11)
  - Excessive granulation tissue [Not Recovered/Not Resolved]
  - Surgery [Unknown]
  - Oropharyngeal pain [Unknown]
  - Gastric disorder [Recovering/Resolving]
  - Anal fistula [Unknown]
  - Vaginal fistula [Unknown]
  - Gastrointestinal stoma complication [Unknown]
  - Gastric disorder [Unknown]
  - Menstruation irregular [Recovering/Resolving]
  - Gastroenteritis [Unknown]
  - Herpes simplex [Unknown]
